FAERS Safety Report 7563269-0 (Version None)
Quarter: 2011Q2

REPORT INFORMATION
  Report Type: 
  Country: None (occurrence: None)
  Receive Date: 20110621
  Receipt Date: 20110621
  Transmission Date: 20111010
  Serious: Yes (Life-Threatening)
  Sender: FDA-Public Use
  Company Number: None

PATIENT
  Age: 29 Year
  Sex: Female
  Weight: 86.637 kg

DRUGS (1)
  1. LEXAPRO [Suspect]
     Indication: DEPRESSION
     Dosage: VARIED 10 MG TO 20MG DAILY PO
     Route: 048
     Dates: start: 19991101, end: 20110201

REACTIONS (8)
  - INCREASED APPETITE [None]
  - WEIGHT INCREASED [None]
  - DISCOMFORT [None]
  - DECREASED ACTIVITY [None]
  - PRODUCT QUALITY ISSUE [None]
  - HYPERPHAGIA [None]
  - DYSPNOEA [None]
  - BLOOD CHOLESTEROL INCREASED [None]
